FAERS Safety Report 4965862-8 (Version None)
Quarter: 2006Q2

REPORT INFORMATION
  Report Type: 
  Country: None (occurrence: None)
  Receive Date: 20060407
  Receipt Date: 20060327
  Transmission Date: 20061013
  Serious: Yes (Hospitalization)
  Sender: FDA-Public Use
  Company Number: US-JNJFOC-20060307684

PATIENT
  Sex: Male

DRUGS (7)
  1. MOTRIN [Suspect]
  2. MOTRIN [Suspect]
     Indication: ARTHRITIS
     Dosage: 500MG OR 600MG STARTED IN 1981 OR 1982.
  3. CELEBREX [Suspect]
     Indication: ARTHRITIS
  4. BACLOFEN [Concomitant]
  5. VALIUM [Concomitant]
  6. PERCOCET [Concomitant]
  7. PERCOCET [Concomitant]
     Indication: PAIN

REACTIONS (6)
  - ANORGASMIA [None]
  - DRUG INEFFECTIVE [None]
  - INTESTINAL PERFORATION [None]
  - PNEUMONIA [None]
  - SENSORY DISTURBANCE [None]
  - WEIGHT DECREASED [None]
